FAERS Safety Report 8829440 (Version 5)
Quarter: 2013Q2

REPORT INFORMATION
  Report Type: Spontaneous
  Country: GB (occurrence: GB)
  Receive Date: 20121008
  Receipt Date: 20130523
  Transmission Date: 20140414
  Serious: Yes (Other)
  Sender: FDA-Public Use
  Company Number: GB-VERTEX PHARMACEUTICAL INC.-2012-021672

PATIENT
  Age: 52 Year
  Sex: Male
  Weight: 71.15 kg

DRUGS (8)
  1. INCIVO [Suspect]
     Indication: CHRONIC HEPATITIS C
     Dosage: 750 MG, TID
     Route: 065
     Dates: start: 20120709, end: 20120817
  2. INCIVO [Suspect]
     Indication: HEPATITIS C
  3. OTHER THERAPEUTIC PRODUCT [Suspect]
     Indication: CHRONIC HEPATITIS C
     Dosage: DOSAGE FORM: UNSPECIFIED
     Route: 048
     Dates: start: 20120709, end: 20120817
  4. RIBAVIRIN [Suspect]
     Indication: CHRONIC HEPATITIS C
     Dosage: DOSAGE FORM: UNSPECIFIED
     Route: 048
     Dates: start: 20120709, end: 20120817
  5. PEGINTERFERON ALFA-2A [Suspect]
     Indication: CHRONIC HEPATITIS C
     Dosage: DOSAGE FORM: LIQUID
     Route: 058
     Dates: start: 20120709, end: 20120813
  6. CETRIZINE [Concomitant]
     Indication: PRURITUS
     Dosage: DOSAGE FORM: UNKNOWN
     Route: 065
  7. EURAX CREAM [Concomitant]
     Indication: PRURITUS
     Dosage: DOSAGE FORM: CREAM
     Route: 065
  8. DIPROBASE [Concomitant]
     Indication: PRODUCT USED FOR UNKNOWN INDICATION
     Dosage: DOSAGE FORM: CREAM
     Route: 061

REACTIONS (2)
  - Surgery [Unknown]
  - Rash [Recovered/Resolved]
